FAERS Safety Report 7003078-4 (Version None)
Quarter: 2010Q3

REPORT INFORMATION
  Report Type: 
  Country: None (occurrence: None)
  Receive Date: 20100920
  Receipt Date: 20100405
  Transmission Date: 20110219
  Serious: No
  Sender: FDA-Public Use
  Company Number: US-ASTRAZENECA-2010SE14798

PATIENT
  Age: 39 Year
  Sex: Female
  Weight: 59 kg

DRUGS (1)
  1. SEROQUEL XR [Suspect]
     Indication: ANXIETY
     Route: 048
     Dates: start: 20100201

REACTIONS (1)
  - LIBIDO DECREASED [None]
